FAERS Safety Report 7969830-3 (Version None)
Quarter: 2011Q4

REPORT INFORMATION
  Report Type: 
  Country: None (occurrence: None)
  Receive Date: 20111212
  Receipt Date: 20111205
  Transmission Date: 20120403
  Serious: No
  Sender: FDA-Public Use
  Company Number: US-PFIZER INC-2011297453

PATIENT
  Sex: Male

DRUGS (2)
  1. FLECTOR [Suspect]
     Dosage: UNK
  2. VOLTAREN [Suspect]
     Dosage: UNK

REACTIONS (2)
  - SOMNOLENCE [None]
  - ASTHENIA [None]
